FAERS Safety Report 22337036 (Version 1)
Quarter: 2023Q2

REPORT INFORMATION
  Report Type: Spontaneous
  Country: US (occurrence: None)
  Receive Date: 20230517
  Receipt Date: 20230517
  Transmission Date: 20230722
  Serious: Yes (Other)
  Sender: FDA-Public Use
  Company Number: None

PATIENT
  Age: 10 Year
  Sex: Male
  Weight: 31.75 kg

DRUGS (1)
  1. HUMIRA [Suspect]
     Active Substance: ADALIMUMAB
     Indication: Crohn^s disease
     Dosage: OTHER FREQUENCY : ONCE;?
     Route: 058
     Dates: start: 20230512

REACTIONS (3)
  - Eye pruritus [None]
  - Eye swelling [None]
  - Pharyngeal paraesthesia [None]

NARRATIVE: CASE EVENT DATE: 20230512
